FAERS Safety Report 8976830 (Version 1)
Quarter: 2012Q4

REPORT INFORMATION
  Report Type: Report from Study
  Country: FR (occurrence: FR)
  Receive Date: 20121219
  Receipt Date: 20121219
  Transmission Date: 20130627
  Serious: Yes (Death)
  Sender: FDA-Public Use
  Company Number: FR-PFIZER INC-2012317716

PATIENT
  Age: 68 Year
  Sex: Female

DRUGS (7)
  1. FLUOROURACIL [Suspect]
     Indication: METASTATIC BREAST CANCER
     Dosage: 750 mg/m2 (1200 mg) for 5 days every 21 days
     Route: 042
     Dates: start: 20080229
  2. SOLU-MEDROL [Suspect]
  3. BEVACIZUMAB [Suspect]
     Indication: METASTATIC BREAST CANCER
     Dosage: 15 mg/kg (825 mg, 1 in 21 days)
     Dates: start: 20080229, end: 20080229
  4. VINORELBINE [Suspect]
     Dosage: 30 mg/m2 (50 mg); for 2 days every 21days
     Route: 042
     Dates: start: 20080229
  5. ONDANSETRON [Suspect]
  6. COKENZEN [Concomitant]
     Dosage: UNK
     Dates: start: 20080309
  7. TAHOR [Concomitant]
     Dosage: UNK
     Dates: start: 20080309

REACTIONS (1)
  - Septic shock [Fatal]
